FAERS Safety Report 12585318 (Version 1)
Quarter: 2016Q3

REPORT INFORMATION
  Report Type: Spontaneous
  Country: FR (occurrence: FR)
  Receive Date: 20160724
  Receipt Date: 20160724
  Transmission Date: 20161109
  Serious: Yes (Hospitalization)
  Sender: FDA-Public Use
  Company Number: FR-ABBVIE-16K-056-1630611-00

PATIENT
  Age: 14 Year
  Sex: Female
  Weight: 50 kg

DRUGS (6)
  1. IMIGRANE [Concomitant]
     Active Substance: SUMATRIPTAN SUCCINATE
     Dosage: FROM 6 MONTHS
     Dates: start: 2016
  2. IMIGRANE [Concomitant]
     Active Substance: SUMATRIPTAN SUCCINATE
     Indication: MIGRAINE
     Dates: start: 20160208, end: 20160208
  3. HUMIRA [Suspect]
     Active Substance: ADALIMUMAB
     Indication: ANKYLOSING SPONDYLITIS
     Route: 058
     Dates: start: 20160128, end: 20160128
  4. HUMIRA [Suspect]
     Active Substance: ADALIMUMAB
     Indication: SPONDYLOARTHROPATHY
  5. VOLTARENE [Concomitant]
     Active Substance: DICLOFENAC SODIUM
     Indication: DRUG THERAPY
     Route: 048
  6. ACUPAN [Concomitant]
     Active Substance: NEFOPAM HYDROCHLORIDE
     Indication: MIGRAINE
     Route: 048
     Dates: start: 2015

REACTIONS (2)
  - Sight disability [Recovered/Resolved]
  - Migraine with aura [Recovered/Resolved]

NARRATIVE: CASE EVENT DATE: 20160202
